FAERS Safety Report 9974733 (Version 1)
Quarter: 2014Q1

REPORT INFORMATION
  Report Type: Report from Study
  Country: US (occurrence: US)
  Receive Date: 20140306
  Receipt Date: 20140306
  Transmission Date: 20141002
  Serious: No
  Sender: FDA-Public Use
  Company Number: US-ABBVIE-13P-163-1159131-00

PATIENT
  Age: 63 Year
  Sex: Female

DRUGS (20)
  1. HUMIRA [Suspect]
     Indication: COLITIS ULCERATIVE
     Route: 058
     Dates: start: 20130917
  2. HUMIRA [Suspect]
     Route: 058
     Dates: start: 20131001
  3. HUMIRA [Suspect]
     Route: 058
     Dates: start: 20131015
  4. LISINOPRIL [Concomitant]
     Indication: BLOOD PRESSURE
  5. TOPROL [Concomitant]
     Indication: HYPERTENSION
  6. FLUOXETINE [Concomitant]
     Indication: DEPRESSION
  7. BUPROPION [Concomitant]
     Indication: DEPRESSION
  8. ZYRTEC [Concomitant]
     Indication: HYPERSENSITIVITY
  9. ELMIRON [Concomitant]
     Indication: CYSTITIS INTERSTITIAL
  10. FOSAMAX [Concomitant]
     Indication: OSTEOPOROSIS
     Dosage: ON TUESDAY
  11. VITAMIN D [Concomitant]
     Indication: PRODUCT USED FOR UNKNOWN INDICATION
  12. VITAMIN B-12 [Concomitant]
     Indication: PRODUCT USED FOR UNKNOWN INDICATION
  13. MULTIVITAMIN [Concomitant]
     Indication: PRODUCT USED FOR UNKNOWN INDICATION
  14. LUMIGAN [Concomitant]
     Indication: PRODUCT USED FOR UNKNOWN INDICATION
     Dosage: 0.03% EYE DROPS ONE DROP IN EACH EYE DAILY
  15. TIMOLOL [Concomitant]
     Indication: PRODUCT USED FOR UNKNOWN INDICATION
     Dosage: 0.05% EYE DROPS ONE DROP IN EACH EYE DAILY
  16. VITAMIN E [Concomitant]
     Indication: PRODUCT USED FOR UNKNOWN INDICATION
     Dosage: 4000 UNITS EVERY DAY
  17. RESTASIS [Concomitant]
     Indication: PRODUCT USED FOR UNKNOWN INDICATION
     Dosage: 0.05% ONE DROP IN EACH EYE DAILY
  18. REFRESH TEAR [Concomitant]
     Indication: PRODUCT USED FOR UNKNOWN INDICATION
     Dosage: ONE DROP IN EACH EYE
  19. TUMS EX [Concomitant]
     Indication: BLOOD CALCIUM
  20. HYDROCODONE [Concomitant]
     Indication: PAIN
     Dosage: 5/500 MG 3-4 TABLETS A DAY

REACTIONS (2)
  - Aphonia [Recovered/Resolved]
  - Headache [Recovered/Resolved]
